FAERS Safety Report 25689758 (Version 1)
Quarter: 2025Q3

REPORT INFORMATION
  Report Type: Spontaneous
  Country: US (occurrence: US)
  Receive Date: 20250818
  Receipt Date: 20250818
  Transmission Date: 20251020
  Serious: Yes (Other)
  Sender: ALVOGEN
  Company Number: US-ALVOGEN-2025098538

PATIENT
  Sex: Female

DRUGS (1)
  1. TERIPARATIDE [Suspect]
     Active Substance: TERIPARATIDE
     Indication: Osteoporosis
     Dosage: STRENGTH: 250MCG/ML
     Route: 058
     Dates: start: 202507

REACTIONS (3)
  - Road traffic accident [Unknown]
  - Rib fracture [Unknown]
  - Contusion [Unknown]

NARRATIVE: CASE EVENT DATE: 20250101
